FAERS Safety Report 4800126-4 (Version None)
Quarter: 2005Q4

REPORT INFORMATION
  Report Type: 
  Country: None (occurrence: None)
  Receive Date: 20051017
  Receipt Date: 20050927
  Transmission Date: 20060501
  Serious: Yes (Hospitalization)
  Sender: FDA-Public Use
  Company Number: FI-GLAXOSMITHKLINE-B0395572A

PATIENT
  Age: 41 Year
  Sex: Male

DRUGS (2)
  1. ZYBAN [Suspect]
     Dosage: 2TAB PER DAY
     Route: 048
     Dates: start: 20050920, end: 20050924
  2. NO CONCURRENT MEDICATION [Concomitant]

REACTIONS (7)
  - CONFUSIONAL STATE [None]
  - DIZZINESS [None]
  - MALAISE [None]
  - MENTAL DISORDER [None]
  - MENTAL IMPAIRMENT [None]
  - MUSCLE SPASMS [None]
  - RESTLESSNESS [None]
